FAERS Safety Report 4531930-8 (Version None)
Quarter: 2004Q4

REPORT INFORMATION
  Report Type: 
  Country: None (occurrence: None)
  Receive Date: 20041220
  Receipt Date: 20041207
  Transmission Date: 20050328
  Serious: Yes (Other)
  Sender: FDA-Public Use
  Company Number: US-GLAXOSMITHKLINE-A0536999A

PATIENT
  Age: 67 Year
  Sex: Female

DRUGS (2)
  1. TUMS E-X TABLETS, WINTERGREEN [Suspect]
     Indication: DYSPEPSIA
     Route: 048
     Dates: start: 19840101
  2. TUMS SMOOTH DISSOLVE TABLETS, PEPPERMINT [Suspect]
     Indication: DYSPEPSIA
     Route: 048
     Dates: start: 20041101, end: 20041201

REACTIONS (9)
  - ASTHMA [None]
  - CONSTIPATION [None]
  - DYSPEPSIA [None]
  - GASTROOESOPHAGEAL REFLUX DISEASE [None]
  - GLOSSODYNIA [None]
  - NAUSEA [None]
  - ORAL MUCOSAL DISORDER [None]
  - ORAL SOFT TISSUE DISORDER [None]
  - PORPHYRIA [None]
